FAERS Safety Report 5076640-6 (Version None)
Quarter: 2006Q3

REPORT INFORMATION
  Report Type: 
  Country: None (occurrence: None)
  Receive Date: 20060810
  Receipt Date: 20060801
  Transmission Date: 20061208
  Serious: Yes (Death)
  Sender: FDA-Public Use
  Company Number: GB-JNJFOC-20060603795

PATIENT
  Sex: Female

DRUGS (1)
  1. DURAGESIC-50 [Suspect]
     Indication: DRUG USE FOR UNKNOWN INDICATION
     Route: 062

REACTIONS (7)
  - ANALGESIC DRUG LEVEL INCREASED [None]
  - BODY TEMPERATURE INCREASED [None]
  - DEATH [None]
  - DRUG INEFFECTIVE [None]
  - DRUG TOXICITY [None]
  - INCORRECT DRUG ADMINISTRATION RATE [None]
  - PHARMACEUTICAL PRODUCT COMPLAINT [None]
